FAERS Safety Report 17892903 (Version 2)
Quarter: 2020Q3

REPORT INFORMATION
  Report Type: Spontaneous
  Country: US (occurrence: US)
  Receive Date: 20200613
  Receipt Date: 20200708
  Transmission Date: 20201103
  Serious: No
  Sender: FDA-Public Use
  Company Number: US-ASTRAZENECA-2020SE74009

PATIENT
  Sex: Female
  Weight: 73.5 kg

DRUGS (8)
  1. CARVEDILOL. [Concomitant]
     Active Substance: CARVEDILOL
  2. GLIMIPERIDE [Concomitant]
     Active Substance: GLIMEPIRIDE
  3. JARDIANCE [Concomitant]
     Active Substance: EMPAGLIFLOZIN
  4. ASPIRIN. [Concomitant]
     Active Substance: ASPIRIN
     Dosage: 81
  5. ATORVASTATIN [Concomitant]
     Active Substance: ATORVASTATIN
  6. BYDUREON BCISE [Suspect]
     Active Substance: EXENATIDE
     Indication: TYPE 2 DIABETES MELLITUS
     Route: 058
     Dates: start: 2015
  7. GABAPENTIN. [Concomitant]
     Active Substance: GABAPENTIN
  8. NORTRYPTYLINE [Concomitant]

REACTIONS (4)
  - Device issue [Unknown]
  - Intentional device misuse [Not Recovered/Not Resolved]
  - Injection site mass [Unknown]
  - Incorrect dose administered by device [Unknown]
